FAERS Safety Report 7731118-3 (Version None)
Quarter: 2011Q3

REPORT INFORMATION
  Report Type: 
  Country: None (occurrence: None)
  Receive Date: 20110906
  Receipt Date: 20110906
  Transmission Date: 20111222
  Serious: Yes (Other)
  Sender: FDA-Public Use
  Company Number: None

PATIENT
  Age: 53 Year
  Sex: Female
  Weight: 95.254 kg

DRUGS (1)
  1. TIZANIDINE HCL [Suspect]
     Indication: FIBROMYALGIA
     Dosage: 4 MG.
     Route: 048
     Dates: start: 20110901, end: 20110904

REACTIONS (5)
  - DIZZINESS [None]
  - HEART RATE DECREASED [None]
  - FEELING ABNORMAL [None]
  - SEDATION [None]
  - BLOOD PRESSURE DECREASED [None]
